FAERS Safety Report 10985192 (Version 1)
Quarter: 2015Q2

REPORT INFORMATION
  Report Type: Spontaneous
  Country: US (occurrence: None)
  Receive Date: 20150403
  Receipt Date: 20150403
  Transmission Date: 20150821
  Serious: No
  Sender: FDA-Public Use
  Company Number: None

PATIENT
  Age: 81 Year
  Sex: Male

DRUGS (1)
  1. ZYTIGA [Suspect]
     Active Substance: ABIRATERONE ACETATE
     Route: 048
     Dates: start: 20140929, end: 20150302

REACTIONS (4)
  - Fluid retention [None]
  - Condition aggravated [None]
  - Weight increased [None]
  - Cardiac failure [None]

NARRATIVE: CASE EVENT DATE: 20150201
